FAERS Safety Report 21225616 (Version 1)
Quarter: 2022Q3

REPORT INFORMATION
  Report Type: Spontaneous
  Country: US (occurrence: US)
  Receive Date: 20220818
  Receipt Date: 20220818
  Transmission Date: 20221026
  Serious: Yes (Other)
  Sender: FDA-Public Use
  Company Number: US-SA-SAC20220812001909

PATIENT
  Age: 56 Year
  Sex: Male

DRUGS (1)
  1. ZANTAC [Suspect]
     Active Substance: RANITIDINE HYDROCHLORIDE
     Dosage: UNK, QD, DOSE: OTHER, QD
     Dates: start: 199501, end: 201001

REACTIONS (1)
  - Prostate cancer stage II [Recovering/Resolving]

NARRATIVE: CASE EVENT DATE: 20100101
